FAERS Safety Report 9457477 (Version 1)
Quarter: 2013Q3

REPORT INFORMATION
  Report Type: Spontaneous
  Country: FR (occurrence: None)
  Receive Date: 20130812
  Receipt Date: 20130812
  Transmission Date: 20140515
  Serious: Yes (Hospitalization)
  Sender: FDA-Public Use
  Company Number: SYM-2013-07742

PATIENT
  Age: 92 Year
  Sex: Male

DRUGS (16)
  1. TILDIEM [Suspect]
     Indication: HYPERTENSION
     Route: 048
     Dates: start: 20120623, end: 20120629
  2. COAPROVEL [Suspect]
     Indication: HYPERTENSION
     Route: 048
     Dates: start: 20120623, end: 20120629
  3. APROVEL [Suspect]
     Indication: HYPERTENSION
     Route: 048
     Dates: start: 20120630, end: 20120704
  4. TRIATEC [Suspect]
     Indication: HYPERTENSION
     Dates: end: 20120622
  5. PROFENID [Suspect]
     Indication: HYPERTENSION
     Dates: end: 20120622
  6. CORDARONE [Suspect]
     Indication: HYPERTENSION
     Route: 048
     Dates: start: 20120619, end: 20120704
  7. LOXEN [Suspect]
     Indication: HYPERTENSION
     Dates: end: 20120622
  8. ESIDREX [Suspect]
     Indication: HYPERTENSION
     Dates: start: 20120630, end: 20120704
  9. EUPRESSYL [Suspect]
     Indication: HYPERTENSION
     Dates: start: 20120629, end: 20120704
  10. LERCAN [Suspect]
     Indication: HYPERTENSION
     Dates: start: 20120629, end: 20130704
  11. KARDEGIC (ACETYLSALICYLATE LYSINE) [Concomitant]
  12. PARIET (RABEPRAZOLE SODIUM) [Concomitant]
  13. SODIUM CITRATE/ SODIUM LAURYL SULFOACETATE (MICROKLIST) (SORBITOL, SODIUM CITRATE, SODIUM LAURYL SULFOACETATE) [Concomitant]
  14. FORLAX (MACROGOL) [Concomitant]
  15. TRANSIPEG (ELECTROLYTES NOS W/MACROGOL 3350) [Concomitant]
  16. EFFERALGAN CODEINE (PANADEINE CO) (CODEINE PHOSPHATE, PARACETAMOL) [Concomitant]

REACTIONS (2)
  - Renal failure [None]
  - Bradycardia [None]
